FAERS Safety Report 6381922-1 (Version None)
Quarter: 2009Q3

REPORT INFORMATION
  Report Type: 
  Country: None (occurrence: None)
  Receive Date: 20090930
  Receipt Date: 20090916
  Transmission Date: 20100115
  Serious: Yes (Other)
  Sender: FDA-Public Use
  Company Number: US-ROCHE-657094

PATIENT
  Sex: Female

DRUGS (4)
  1. BONIVA [Suspect]
     Indication: OSTEOPOROSIS
     Route: 048
     Dates: start: 20090913, end: 20090913
  2. BONIVA [Suspect]
     Route: 048
  3. BONIVA [Suspect]
     Route: 048
  4. SYNTHROID [Concomitant]

REACTIONS (3)
  - NO ADVERSE EVENT [None]
  - RECURRENT CANCER [None]
  - WRONG TECHNIQUE IN DRUG USAGE PROCESS [None]
